FAERS Safety Report 11506777 (Version 1)
Quarter: 2015Q3

REPORT INFORMATION
  Report Type: Spontaneous
  Country: US (occurrence: US)
  Receive Date: 20150915
  Receipt Date: 20150915
  Transmission Date: 20151125
  Serious: No
  Sender: FDA-Public Use
  Company Number: US-ROCHE-733307

PATIENT
  Age: 57 Year
  Sex: Female
  Weight: 83.5 kg

DRUGS (5)
  1. PEGASYS [Suspect]
     Active Substance: PEGINTERFERON ALFA-2A
     Indication: HEPATITIS C
     Dosage: FORM: PRE-FILLED SYRINGE
     Route: 058
  2. RIBAVIRIN. [Suspect]
     Active Substance: RIBAVIRIN
     Indication: HEPATITIS C
     Dosage: DIVIDED DOSES
     Route: 048
  3. RIBAVIRIN. [Suspect]
     Active Substance: RIBAVIRIN
     Indication: HEPATITIS C
     Dosage: DIVIDED DOSES, MANUFACTURER: CADILA HEALTH CARE, ROUTE:ORAL, STRENGTH: 200 MG
     Route: 065
  4. RIBAVIRIN. [Suspect]
     Active Substance: RIBAVIRIN
     Dosage: DIVIDED DOSES, DRUG:RIBASPHERE, MANUFACTURER :THREE BRAND PHARMACEUTICALS
     Route: 065
  5. TEKTURNA [Concomitant]
     Active Substance: ALISKIREN HEMIFUMARATE
     Indication: HYPERTENSION
     Route: 065

REACTIONS (22)
  - Injection site reaction [Unknown]
  - Vision blurred [Unknown]
  - Peripheral swelling [Unknown]
  - Sensation of foreign body [Unknown]
  - Muscle spasms [Not Recovered/Not Resolved]
  - Respiratory tract infection [Not Recovered/Not Resolved]
  - Musculoskeletal pain [Unknown]
  - Influenza like illness [Not Recovered/Not Resolved]
  - Blood glucose increased [Unknown]
  - Dizziness [Unknown]
  - Paraesthesia [Unknown]
  - Injection site bruising [Unknown]
  - Epistaxis [Unknown]
  - Neck pain [Unknown]
  - Lymphadenopathy [Not Recovered/Not Resolved]
  - Blood pressure increased [Unknown]
  - Joint swelling [Unknown]
  - Lymphadenopathy [Not Recovered/Not Resolved]
  - Productive cough [Not Recovered/Not Resolved]
  - Headache [Unknown]
  - Hypoaesthesia [Unknown]
  - Wheezing [Not Recovered/Not Resolved]

NARRATIVE: CASE EVENT DATE: 20101001
